FAERS Safety Report 14487115 (Version 1)
Quarter: 2018Q1

REPORT INFORMATION
  Report Type: Spontaneous
  Country: US (occurrence: US)
  Receive Date: 20180204
  Receipt Date: 20180204
  Transmission Date: 20180509
  Serious: Yes (Other)
  Sender: FDA-Public Use
  Company Number: None

PATIENT
  Age: 76 Year
  Sex: Female
  Weight: 92.7 kg

DRUGS (7)
  1. LOVAZA [Concomitant]
     Active Substance: OMEGA-3-ACID ETHYL ESTERS
  2. DIOVAN [Concomitant]
     Active Substance: VALSARTAN
  3. IMIQUIMOD. [Suspect]
     Active Substance: IMIQUIMOD
     Indication: LIP NEOPLASM MALIGNANT STAGE UNSPECIFIED
     Dosage: ?          OTHER FREQUENCY:1X ON M, W, F;?
     Route: 061
     Dates: start: 20180202, end: 20180202
  4. SYNTHROID [Concomitant]
     Active Substance: LEVOTHYROXINE SODIUM
  5. AREDS [Concomitant]
     Active Substance: MINERALS\VITAMINS
  6. HYDROCHLORATHIAZIDE [Concomitant]
     Active Substance: HYDROCHLOROTHIAZIDE
  7. ALEVE [Concomitant]
     Active Substance: NAPROXEN SODIUM

REACTIONS (4)
  - Flushing [None]
  - Ear pain [None]
  - Hypopnoea [None]
  - Chest pain [None]

NARRATIVE: CASE EVENT DATE: 20180202
